FAERS Safety Report 5900074-2 (Version None)
Quarter: 2008Q3

REPORT INFORMATION
  Report Type: 
  Country: None (occurrence: None)
  Receive Date: 20080924
  Receipt Date: 20080919
  Transmission Date: 20090109
  Serious: Yes (Hospitalization)
  Sender: FDA-Public Use
  Company Number: OSCN-GE-0809S-0542

PATIENT
  Age: 64 Year
  Sex: Male
  Weight: 73 kg

DRUGS (3)
  1. OMNISCAN [Suspect]
     Indication: TINNITUS
     Dosage: 14 ML, SINGLE DOSE, I.V.
     Route: 042
     Dates: start: 20080825, end: 20080825
  2. OMNISCAN [Suspect]
     Indication: VESTIBULAR DISORDER
     Dosage: 14 ML, SINGLE DOSE, I.V.
     Route: 042
     Dates: start: 20080825, end: 20080825
  3. OMNISCAN [Suspect]

REACTIONS (3)
  - ACUTE PRERENAL FAILURE [None]
  - DEHYDRATION [None]
  - GASTROENTERITIS [None]
